FAERS Safety Report 8808714 (Version 1)
Quarter: 2012Q4

REPORT INFORMATION
  Report Type: 
  Country: CA (occurrence: CA)
  Receive Date: 20120926
  Receipt Date: 20120926
  Transmission Date: 20130627
  Serious: Yes (Other)
  Sender: FDA-Public Use
  Company Number: CA-JNJFOC-20120203879

PATIENT
  Age: 45 Year
  Sex: Female
  Weight: 61.69 kg

DRUGS (1)
  1. REMICADE [Suspect]
     Indication: COLITIS ULCERATIVE
     Route: 042
     Dates: start: 201110, end: 201202

REACTIONS (3)
  - Liver disorder [Unknown]
  - Dermatitis allergic [Unknown]
  - Adverse event [Unknown]
